FAERS Safety Report 23916467 (Version 1)
Quarter: 2024Q2

REPORT INFORMATION
  Report Type: Other
  Country: GB (occurrence: GB)
  Receive Date: 20240529
  Receipt Date: 20240529
  Transmission Date: 20240716
  Serious: Yes (Other)
  Sender: FDA-Public Use
  Company Number: None

PATIENT

DRUGS (3)
  1. MONTELUKAST SODIUM [Suspect]
     Active Substance: MONTELUKAST SODIUM
     Indication: Asthma
     Dosage: 1 DOSAGE FORM, QD, FOR CHILDREN {6 - AT NIGHT
     Route: 048
     Dates: start: 20240430
  2. ALBUTEROL [Concomitant]
     Active Substance: ALBUTEROL
     Indication: Product used for unknown indication
     Dosage: UNK, PRN (NHALE ONE OR TWO PUFFS WHEN REQUIRED (PLEASE R...)
     Route: 055
     Dates: start: 20230426
  3. SERETIDE [Concomitant]
     Active Substance: FLUTICASONE PROPIONATE\SALMETEROL XINAFOATE
     Indication: Asthma
     Dosage: 1 DOSAGE FORM, BID
     Route: 055
     Dates: start: 20230808

REACTIONS (4)
  - Poor quality sleep [Unknown]
  - Sleep disorder [Recovered/Resolved]
  - Agitation [Unknown]
  - Contusion [Unknown]

NARRATIVE: CASE EVENT DATE: 20240430
